FAERS Safety Report 8270511-X (Version None)
Quarter: 2012Q2

REPORT INFORMATION
  Report Type: 
  Country: None (occurrence: None)
  Receive Date: 20120410
  Receipt Date: 20120402
  Transmission Date: 20120825
  Serious: Yes (Other)
  Sender: FDA-Public Use
  Company Number: JP-ASTELLAS-2012JP002796

PATIENT
  Age: 93 Year
  Sex: Female

DRUGS (7)
  1. TRAZODONE HYDROCHLORIDE [Concomitant]
     Route: 065
  2. LAMISIL [Concomitant]
     Route: 065
  3. SEROQUEL [Suspect]
     Dosage: 12.5 MG, UNKNOWN/D
     Route: 048
  4. MEMANTINE HYDROCHLORIDE [Concomitant]
     Route: 065
  5. SENNOSIDE [Concomitant]
     Route: 065
  6. VESICARE [Suspect]
     Route: 048
  7. LENDORMIN [Concomitant]
     Route: 048

REACTIONS (1)
  - NEUROLEPTIC MALIGNANT SYNDROME [None]
